FAERS Safety Report 10947402 (Version 1)
Quarter: 2015Q1

REPORT INFORMATION
  Report Type: Spontaneous
  Country: US (occurrence: None)
  Receive Date: 20150219
  Receipt Date: 20150219
  Transmission Date: 20150721
  Serious: Yes (Other)
  Sender: FDA-Public Use
  Company Number: 2014-04241

PATIENT
  Age: 18 Year
  Sex: Female

DRUGS (1)
  1. GENERESS FE [Suspect]
     Active Substance: ETHINYL ESTRADIOL\FERROUS FUMARATE\NORETHINDRONE
     Indication: ORAL CONTRACEPTION
     Route: 048
     Dates: start: 201306, end: 201309

REACTIONS (2)
  - Menstruation irregular [None]
  - Thrombosis [None]

NARRATIVE: CASE EVENT DATE: 2013
